FAERS Safety Report 10292370 (Version 1)
Quarter: 2014Q3

REPORT INFORMATION
  Report Type: Spontaneous
  Country: US (occurrence: US)
  Receive Date: 20140710
  Receipt Date: 20140710
  Transmission Date: 20150326
  Serious: No
  Sender: FDA-Public Use
  Company Number: US-PURDUE-USA-2013-0106722

PATIENT
  Sex: Female

DRUGS (1)
  1. BUTRANS [Suspect]
     Active Substance: BUPRENORPHINE
     Indication: OVARIAN CYST
     Dosage: 20 MCG/HR, WEEKLY
     Route: 062
     Dates: start: 20130806, end: 201309

REACTIONS (11)
  - Application site discolouration [Unknown]
  - Product adhesion issue [Unknown]
  - Application site discharge [Unknown]
  - Application site dryness [Unknown]
  - Application site vesicles [Unknown]
  - Application site haemorrhage [Unknown]
  - Extra dose administered [Unknown]
  - Application site exfoliation [Unknown]
  - Application site pruritus [Unknown]
  - Application site erosion [Unknown]
  - Application site burn [Unknown]
